FAERS Safety Report 17125043 (Version 1)
Quarter: 2019Q4

REPORT INFORMATION
  Report Type: Spontaneous
  Country: US (occurrence: US)
  Receive Date: 20191206
  Receipt Date: 20191206
  Transmission Date: 20200122
  Serious: No
  Sender: FDA-Public Use
  Company Number: US-TEVA-2019-US-1149371

PATIENT
  Sex: Female

DRUGS (1)
  1. QVAR REDIHALER [Suspect]
     Active Substance: BECLOMETHASONE DIPROPIONATE
     Dosage: 160  DAILY; QVAR REDIHALER 2 PUFFS 2 X DAILY, FORM STRENGTH: 80, UNIT WAS NOT PROVIDED
     Route: 065
     Dates: start: 20190604

REACTIONS (2)
  - Eye disorder [Unknown]
  - Adverse drug reaction [Unknown]
